FAERS Safety Report 9354602 (Version 3)
Quarter: 2013Q3

REPORT INFORMATION
  Report Type: Report from Study
  Country: US (occurrence: US)
  Receive Date: 20130618
  Receipt Date: 20130814
  Transmission Date: 20140515
  Serious: Yes (Hospitalization)
  Sender: FDA-Public Use
  Company Number: US-US-EMD SERONO, INC.-7217930

PATIENT
  Age: 60 Year
  Sex: Female

DRUGS (2)
  1. REBIF [Suspect]
     Indication: MULTIPLE SCLEROSIS
     Route: 058
     Dates: start: 20130503
  2. REBIF [Suspect]
     Route: 058
     Dates: end: 201307

REACTIONS (6)
  - Asthenia [Unknown]
  - Balance disorder [Unknown]
  - Fall [Unknown]
  - Hypertension [Unknown]
  - Somnolence [Unknown]
  - Multiple sclerosis [Unknown]
